FAERS Safety Report 23226427 (Version 2)
Quarter: 2023Q4

REPORT INFORMATION
  Report Type: Spontaneous
  Country: CO (occurrence: CO)
  Receive Date: 20231124
  Receipt Date: 20231215
  Transmission Date: 20240109
  Serious: Yes (Other)
  Sender: FDA-Public Use
  Company Number: CO-PFIZER INC-PV202300188395

PATIENT
  Age: 61 Year
  Sex: Female

DRUGS (1)
  1. INLYTA [Suspect]
     Active Substance: AXITINIB
     Indication: Renal cancer
     Dosage: 5 MG, 2X/DAY
     Route: 048
     Dates: start: 202309

REACTIONS (19)
  - Respiratory distress [Unknown]
  - Choking [Unknown]
  - Glaucoma [Unknown]
  - Inflammation [Unknown]
  - Headache [Unknown]
  - Pain [Unknown]
  - Nasal dryness [Unknown]
  - Dyspnoea [Unknown]
  - Dry skin [Unknown]
  - Alopecia [Unknown]
  - Eye inflammation [Unknown]
  - Visual impairment [Unknown]
  - Dry eye [Unknown]
  - Decreased appetite [Unknown]
  - Weight decreased [Unknown]
  - Chest pain [Unknown]
  - Spinal pain [Unknown]
  - Dry throat [Unknown]
  - Mouth injury [Unknown]

NARRATIVE: CASE EVENT DATE: 20230101
